FAERS Safety Report 9479335 (Version 1)
Quarter: 2013Q3

REPORT INFORMATION
  Report Type: Spontaneous
  Country: IT (occurrence: IT)
  Receive Date: 20130827
  Receipt Date: 20130827
  Transmission Date: 20140515
  Serious: Yes (Other)
  Sender: FDA-Public Use
  Company Number: PHHY2013IT091507

PATIENT
  Sex: Female

DRUGS (1)
  1. METHADONE [Suspect]
     Dosage: MATERNAL DOSE: 35 MG DAILY
     Route: 064

REACTIONS (5)
  - Nystagmus [Recovering/Resolving]
  - Eye movement disorder [Recovering/Resolving]
  - Visual acuity reduced [Recovering/Resolving]
  - Drug withdrawal syndrome neonatal [Unknown]
  - Foetal exposure during pregnancy [Unknown]
